FAERS Safety Report 7972441-7 (Version None)
Quarter: 2011Q4

REPORT INFORMATION
  Report Type: 
  Country: None (occurrence: None)
  Receive Date: 20111213
  Receipt Date: 20111208
  Transmission Date: 20120403
  Serious: No
  Sender: FDA-Public Use
  Company Number: US-BIOGENIDEC-2011BI046705

PATIENT
  Age: 53 Year
  Sex: Female

DRUGS (4)
  1. TYSABRI [Suspect]
     Indication: MULTIPLE SCLEROSIS
     Route: 042
     Dates: start: 20110222
  2. AVONEX [Concomitant]
     Indication: MULTIPLE SCLEROSIS
     Route: 030
     Dates: start: 20101209
  3. TYSABRI [Suspect]
     Route: 042
     Dates: start: 20100420, end: 20100923
  4. TYSABRI [Suspect]
     Route: 042
     Dates: start: 20030201, end: 20050201

REACTIONS (2)
  - DEPRESSION [None]
  - CANDIDIASIS [None]
